FAERS Safety Report 5808493-X (Version None)
Quarter: 2008Q3

REPORT INFORMATION
  Report Type: 
  Country: None (occurrence: None)
  Receive Date: 20080714
  Receipt Date: 20080704
  Transmission Date: 20090109
  Serious: Yes (Hospitalization)
  Sender: FDA-Public Use
  Company Number: FR-AMGEN-US293389

PATIENT
  Sex: Female

DRUGS (6)
  1. ENBREL [Suspect]
     Indication: PSORIATIC ARTHROPATHY
     Route: 058
     Dates: start: 20070915, end: 20071015
  2. POLARAMINE [Concomitant]
     Dosage: UNKNOWN
     Route: 065
  3. LANSOPRAZOLE [Concomitant]
     Dosage: UNKNOWN
     Route: 065
  4. TAHOR [Concomitant]
     Dosage: UNKNOWN
     Route: 065
  5. KETOPROFEN [Concomitant]
     Dosage: UNKNOWN
     Route: 065
  6. TOPALGIC [Concomitant]
     Dosage: UNKNOWN
     Route: 065

REACTIONS (6)
  - HYPERSENSITIVITY [None]
  - OROPHARYNGEAL PAIN [None]
  - PULMONARY GRANULOMA [None]
  - PULMONARY SARCOIDOSIS [None]
  - PYREXIA [None]
  - URTICARIA [None]
